FAERS Safety Report 5244868-8 (Version None)
Quarter: 2007Q1

REPORT INFORMATION
  Report Type: 
  Country: None (occurrence: None)
  Receive Date: 20070221
  Receipt Date: 20070221
  Transmission Date: 20070707
  Serious: No
  Sender: FDA-Public Use
  Company Number: None

PATIENT
  Sex: Male
  Weight: 49.9 kg

DRUGS (13)
  1. MOXIFLOXACIN HCL [Suspect]
     Indication: PNEUMONIA
     Dosage: 400 MG IV QD
     Route: 042
     Dates: start: 20060602, end: 20060605
  2. MOXIFLOXACIN HCL [Suspect]
     Indication: PYREXIA
     Dosage: 400 MG IV QD
     Route: 042
     Dates: start: 20060602, end: 20060605
  3. ASPIRIN [Concomitant]
  4. CITALOPRAM HYDROBROMIDE [Concomitant]
  5. LISINOPRIL [Concomitant]
  6. ZANTAC [Concomitant]
  7. SIMVASTATIN [Concomitant]
  8. VITAMIN CAP [Concomitant]
  9. METOPROLOL TARTRATE [Concomitant]
  10. GABAPENTIN [Concomitant]
  11. NITROGLYCERIN [Concomitant]
  12. ACETAMINOPHEN [Concomitant]
  13. CEFUROXIME [Concomitant]

REACTIONS (1)
  - BLOOD GLUCOSE ABNORMAL [None]
